FAERS Safety Report 21185144 (Version 1)
Quarter: 2022Q3

REPORT INFORMATION
  Report Type: Report from Study
  Country: MX (occurrence: MX)
  Receive Date: 20220808
  Receipt Date: 20220808
  Transmission Date: 20221026
  Serious: Yes (Other)
  Sender: FDA-Public Use
  Company Number: MX-NOVARTISPH-NVSC2022MX178151

PATIENT
  Sex: Female
  Weight: 40 kg

DRUGS (2)
  1. KISQALI [Suspect]
     Active Substance: RIBOCICLIB
     Indication: Breast cancer
     Dosage: UNK
     Route: 048
     Dates: start: 2020
  2. ZOLEDRONIC ACID [Suspect]
     Active Substance: ZOLEDRONIC ACID
     Indication: Product used for unknown indication
     Dosage: UNK
     Route: 065

REACTIONS (9)
  - Metastases to bone [Unknown]
  - Metastases to liver [Unknown]
  - Metastases to lung [Unknown]
  - Weight decreased [Unknown]
  - Eating disorder [Unknown]
  - Breath odour [Unknown]
  - Throat irritation [Unknown]
  - Movement disorder [Unknown]
  - Coagulopathy [Unknown]
